FAERS Safety Report 8119980-6 (Version None)
Quarter: 2012Q1

REPORT INFORMATION
  Report Type: 
  Country: None (occurrence: None)
  Receive Date: 20120207
  Receipt Date: 20111116
  Transmission Date: 20120608
  Serious: Yes (Disabling, Other)
  Sender: FDA-Public Use
  Company Number: FR-ASTELLAS-2011EU005814

PATIENT
  Sex: Male
  Weight: 108 kg

DRUGS (3)
  1. MYCOPHENOLATE MOFETIL (CELLCEPT) [Concomitant]
     Indication: PROPHYLAXIS AGAINST TRANSPLANT REJECTION
     Dosage: 3 G, TOTAL DOSE
     Route: 048
     Dates: start: 20090121
  2. TACROLIMUS [Suspect]
     Dosage: UNK
     Route: 065
  3. PROGRAF [Suspect]
     Indication: PROPHYLAXIS AGAINST TRANSPLANT REJECTION
     Dosage: 3 MG, TOTAL DOSE
     Route: 048
     Dates: start: 20090121, end: 20110818

REACTIONS (2)
  - ADVERSE DRUG REACTION [None]
  - TYPE 1 DIABETES MELLITUS [None]
